FAERS Safety Report 24184570 (Version 2)
Quarter: 2024Q3

REPORT INFORMATION
  Report Type: Spontaneous
  Country: US (occurrence: US)
  Receive Date: 20240807
  Receipt Date: 20240812
  Transmission Date: 20241017
  Serious: No
  Sender: ABBVIE
  Company Number: US-ABBVIE-5866070

PATIENT
  Sex: Female

DRUGS (1)
  1. NAMENDA [Suspect]
     Active Substance: MEMANTINE HYDROCHLORIDE
     Indication: Dementia Alzheimer^s type
     Dosage: UNKNOWN

REACTIONS (5)
  - Abnormal dreams [Unknown]
  - Night sweats [Unknown]
  - Constipation [Unknown]
  - Hunger [Unknown]
  - Hot flush [Unknown]
